FAERS Safety Report 9478708 (Version 4)
Quarter: 2013Q4

REPORT INFORMATION
  Report Type: Report from Study
  Country: US (occurrence: US)
  Receive Date: 20130827
  Receipt Date: 20131106
  Transmission Date: 20140711
  Serious: Yes (Hospitalization)
  Sender: FDA-Public Use
  Company Number: US-ACTELION-A-NJ2013-87481

PATIENT
  Age: 67 Year
  Sex: Male

DRUGS (5)
  1. TRACLEER [Suspect]
     Indication: PULMONARY HYPERTENSION
     Dosage: 125 MG, BID
     Route: 048
     Dates: start: 200409, end: 20130813
  2. COUMADIN [Concomitant]
     Dosage: 5 MG, 2 DAYS PER WEEK
     Dates: start: 2004
  3. COUMADIN [Concomitant]
     Dosage: 2.5 MG, 5 DAYS PER WEEK
  4. LISINOPRIL [Concomitant]
     Dosage: 40 MG, UNK
     Dates: start: 2004
  5. CLARITIN [Concomitant]
     Dosage: 10 MG, QD
     Dates: start: 201307

REACTIONS (5)
  - Viral upper respiratory tract infection [Recovering/Resolving]
  - Cardiac failure congestive [Not Recovered/Not Resolved]
  - Dyspnoea [Not Recovered/Not Resolved]
  - Asthenia [Not Recovered/Not Resolved]
  - Oxygen saturation decreased [Not Recovered/Not Resolved]
